FAERS Safety Report 9556187 (Version 1)
Quarter: 2013Q3

REPORT INFORMATION
  Report Type: Spontaneous
  Country: US (occurrence: US)
  Receive Date: 20130926
  Receipt Date: 20130926
  Transmission Date: 20140515
  Serious: Yes (Other)
  Sender: FDA-Public Use
  Company Number: US-SANOFI-AVENTIS-2013SA092628

PATIENT
  Sex: 0

DRUGS (1)
  1. CARTICEL [Suspect]
     Indication: CHONDROPATHY
     Route: 065
     Dates: start: 2013

REACTIONS (2)
  - Transplant failure [Unknown]
  - Pain [Unknown]
